FAERS Safety Report 9258606 (Version 1)
Quarter: 2013Q1

REPORT INFORMATION
  Report Type: Spontaneous
  Country: US (occurrence: None)
  Receive Date: 20121212
  Receipt Date: 20121212
  Transmission Date: 20140127
  Serious: No
  Sender: FDA-Public Use
  Company Number: 1209USA008082

PATIENT
  Age: 57 Year
  Sex: Female

DRUGS (1)
  1. VICTRELIS (BOCEPREVIR) CAPSULES [Suspect]
     Route: 048
     Dates: start: 20120911

REACTIONS (1)
  - Abdominal pain upper [None]
